FAERS Safety Report 21547246 (Version 3)
Quarter: 2023Q1

REPORT INFORMATION
  Report Type: Spontaneous
  Country: US (occurrence: US)
  Receive Date: 20221103
  Receipt Date: 20230131
  Transmission Date: 20230417
  Serious: Yes (Hospitalization, Other)
  Sender: FDA-Public Use
  Company Number: US-BRISTOL-MYERS SQUIBB COMPANY-2022-130575

PATIENT
  Age: 72 Year
  Sex: Female

DRUGS (2)
  1. ORENCIA [Suspect]
     Active Substance: ABATACEPT
     Indication: Product used for unknown indication
     Dosage: DOSE: UNAVAILABLE; FREQ: ONE SYRINGE ONCE A WEEK
     Route: 058
  2. ORENCIA [Suspect]
     Active Substance: ABATACEPT

REACTIONS (14)
  - Illness [Unknown]
  - Arthritis [Unknown]
  - Large intestinal ulcer [Unknown]
  - Hypotension [Unknown]
  - Weight decreased [Unknown]
  - Colon cancer [Unknown]
  - Cerebral disorder [Unknown]
  - Respiratory tract congestion [Unknown]
  - Hand deformity [Unknown]
  - Rash [Unknown]
  - Nail disorder [Unknown]
  - Respiratory tract infection [Unknown]
  - Product dose omission issue [Unknown]
  - Rheumatoid arthritis [Unknown]

NARRATIVE: CASE EVENT DATE: 20221229
